FAERS Safety Report 21344707 (Version 1)
Quarter: 2022Q3

REPORT INFORMATION
  Report Type: Spontaneous
  Country: US (occurrence: US)
  Receive Date: 20220916
  Receipt Date: 20220916
  Transmission Date: 20221027
  Serious: No
  Sender: FDA-Public Use
  Company Number: US-REGENERON PHARMACEUTICALS, INC.-2022-088489

PATIENT
  Sex: Female

DRUGS (2)
  1. PRALUENT [Suspect]
     Active Substance: ALIROCUMAB
     Indication: Hypercholesterolaemia
     Dosage: 75 MG, Q2W, AS DIRECTED
     Route: 058
  2. PRALUENT [Suspect]
     Active Substance: ALIROCUMAB
     Dosage: 75 MG, Q3W, AS DIRECTED
     Route: 058

REACTIONS (4)
  - Adverse drug reaction [Unknown]
  - Influenza like illness [Unknown]
  - Muscle spasms [Unknown]
  - Off label use [Unknown]
